FAERS Safety Report 8818226 (Version 1)
Quarter: 2012Q4

REPORT INFORMATION
  Report Type: 
  Country: GB (occurrence: GB)
  Receive Date: 20121001
  Receipt Date: 20121001
  Transmission Date: 20130627
  Serious: Yes (Other)
  Sender: FDA-Public Use
  Company Number: GB-TEVA-360587ISR

PATIENT
  Age: 13 Year
  Sex: Male
  Weight: 57.3 kg

DRUGS (5)
  1. OLANZAPINE [Suspect]
     Indication: PSYCHOTIC DISORDER
     Dosage: 5mg initially, increased gradually to 20mg at night by 15/05/12
     Route: 048
     Dates: start: 20120415
  2. OLANZAPINE [Suspect]
     Indication: PSYCHOTIC DISORDER
     Dosage: 20 Milligram Daily; at night
     Route: 048
     Dates: start: 20120515
  3. HYOSCINE HYDROBROMIDE [Concomitant]
  4. LORAZEPAM [Concomitant]
     Dosage: Lorazepam only used in a few isolated doses, not regularly
  5. DIAZEPAM [Concomitant]
     Dosage: Diazepam only used in a few isolated doses, not regularly

REACTIONS (3)
  - Drug level above therapeutic [Recovering/Resolving]
  - Liver injury [Not Recovered/Not Resolved]
  - Blood alkaline phosphatase increased [Not Recovered/Not Resolved]
